FAERS Safety Report 22284193 (Version 2)
Quarter: 2023Q2

REPORT INFORMATION
  Report Type: Spontaneous
  Country: US (occurrence: US)
  Receive Date: 20230504
  Receipt Date: 20230515
  Transmission Date: 20230722
  Serious: No
  Sender: FDA-Public Use
  Company Number: US-AGIOS-2304US03340

PATIENT
  Sex: Female
  Weight: 71 kg

DRUGS (3)
  1. PYRUKYND [Suspect]
     Active Substance: MITAPIVAT
     Indication: Pyruvate kinase deficiency anaemia
     Dosage: 50 MILLIGRAM, BID
     Route: 048
     Dates: start: 20230213
  2. PYRUKYND [Suspect]
     Active Substance: MITAPIVAT
     Dosage: 20 MILLIGRAM
     Dates: start: 202303, end: 20230419
  3. PYRUKYND [Suspect]
     Active Substance: MITAPIVAT
     Dosage: 50 MILLIGRAM
     Route: 065
     Dates: start: 20230419

REACTIONS (1)
  - Menstrual disorder [Unknown]
